FAERS Safety Report 21157360 (Version 1)
Quarter: 2022Q3

REPORT INFORMATION
  Report Type: Spontaneous
  Country: US (occurrence: None)
  Receive Date: 20220730
  Receipt Date: 20220730
  Transmission Date: 20221027
  Serious: Yes (unspecified)
  Sender: FDA-Public Use
  Company Number: None

PATIENT
  Age: 61 Year
  Sex: Female
  Weight: 120.15 kg

DRUGS (11)
  1. DULOXETINE [Suspect]
     Active Substance: DULOXETINE
     Indication: Depression
     Dosage: FREQUENCY : DAILY;?
     Route: 048
     Dates: start: 20220503, end: 20220726
  2. DULOXETINE [Suspect]
     Active Substance: DULOXETINE
     Indication: Generalised anxiety disorder
  3. GABAPENTIN [Concomitant]
     Active Substance: GABAPENTIN
     Dates: start: 20210609, end: 20220726
  4. ALPRAZOLAM [Concomitant]
     Active Substance: ALPRAZOLAM
  5. LUNESTA [Concomitant]
     Active Substance: ESZOPICLONE
     Dates: start: 20220503, end: 20220726
  6. INVOKANA [Concomitant]
     Active Substance: CANAGLIFLOZIN
  7. TRESIBA [Concomitant]
     Active Substance: INSULIN DEGLUDEC
  8. VICTOZA [Concomitant]
     Active Substance: LIRAGLUTIDE
  9. MONTELUKAST [Concomitant]
     Active Substance: MONTELUKAST SODIUM
  10. LEVOTHYROXINE [Concomitant]
     Active Substance: LEVOTHYROXINE
  11. METFORMIN [Concomitant]
     Active Substance: METFORMIN HYDROCHLORIDE

REACTIONS (3)
  - Dyskinesia [None]
  - Chorea [None]
  - Dyskinesia [None]

NARRATIVE: CASE EVENT DATE: 20220726
